FAERS Safety Report 25015247 (Version 1)
Quarter: 2025Q1

REPORT INFORMATION
  Report Type: Spontaneous
  Country: JP (occurrence: JP)
  Receive Date: 20250226
  Receipt Date: 20250226
  Transmission Date: 20250408
  Serious: Yes (Death, Other)
  Sender: MERCK SHARP & DOHME LLC
  Company Number: JP-MSD-2407JPN001835J

PATIENT
  Age: 8 Decade
  Sex: Female

DRUGS (6)
  1. KEYTRUDA [Suspect]
     Active Substance: PEMBROLIZUMAB
     Indication: Triple negative breast cancer
     Route: 065
  2. KEYTRUDA [Suspect]
     Active Substance: PEMBROLIZUMAB
     Indication: Triple negative breast cancer
     Route: 065
  3. CARBOPLATIN [Suspect]
     Active Substance: CARBOPLATIN
     Indication: Triple negative breast cancer
     Route: 065
  4. PACLITAXEL [Suspect]
     Active Substance: PACLITAXEL
     Indication: Triple negative breast cancer
     Route: 065
  5. EPIRUBICIN [Suspect]
     Active Substance: EPIRUBICIN
     Indication: Triple negative breast cancer
     Route: 065
  6. CYCLOPHOSPHAMIDE [Suspect]
     Active Substance: CYCLOPHOSPHAMIDE
     Indication: Triple negative breast cancer
     Route: 065

REACTIONS (5)
  - Death [Fatal]
  - Malignant neoplasm progression [Unknown]
  - Altered state of consciousness [Unknown]
  - Febrile neutropenia [Unknown]
  - Adrenal insufficiency [Unknown]
